FAERS Safety Report 5060923-X (Version None)
Quarter: 2006Q3

REPORT INFORMATION
  Report Type: 
  Country: None (occurrence: None)
  Receive Date: 20060718
  Receipt Date: 20060718
  Transmission Date: 20061208
  Serious: Yes (Death, Hospitalization)
  Sender: FDA-Public Use
  Company Number: None

PATIENT
  Age: 80 Year
  Sex: Female

DRUGS (6)
  1. WARFARIN SODIUM [Suspect]
     Indication: PROPHYLAXIS
     Dosage: 2.5 MG - 5MG QD PO
     Route: 048
  2. WARFARIN SODIUM [Suspect]
     Indication: PULMONARY EMBOLISM
     Dosage: 2.5 MG - 5MG QD PO
     Route: 048
  3. WARFARIN SODIUM [Suspect]
     Indication: THROMBOSIS PROPHYLAXIS
     Dosage: 2.5 MG - 5MG QD PO
     Route: 048
  4. ENOXAPARIN SODIUM [Suspect]
     Indication: PROPHYLAXIS
     Dosage: 60 MG
  5. ENOXAPARIN SODIUM [Suspect]
     Indication: PULMONARY EMBOLISM
     Dosage: 60 MG
  6. ENOXAPARIN SODIUM [Suspect]
     Indication: THROMBOSIS PROPHYLAXIS
     Dosage: 60 MG

REACTIONS (5)
  - COAGULOPATHY [None]
  - ECCHYMOSIS [None]
  - HAEMATOMA [None]
  - OEDEMA PERIPHERAL [None]
  - POST PROCEDURAL COMPLICATION [None]
